FAERS Safety Report 7730387-3 (Version None)
Quarter: 2011Q3

REPORT INFORMATION
  Report Type: 
  Country: None (occurrence: None)
  Receive Date: 20110824
  Receipt Date: 20110811
  Transmission Date: 20111222
  Serious: Yes (Hospitalization, Other)
  Sender: FDA-Public Use
  Company Number: US-145237

PATIENT
  Sex: Female
  Weight: 113.3993 kg

DRUGS (5)
  1. WINRHO SDF LIQUID [Suspect]
     Indication: IDIOPATHIC THROMBOCYTOPENIC PURPURA
     Dosage: SEE IMAGE
     Route: 042
     Dates: start: 20110725, end: 20110725
  2. WINRHO SDF LIQUID [Suspect]
     Indication: IDIOPATHIC THROMBOCYTOPENIC PURPURA
     Dosage: SEE IMAGE
     Route: 042
     Dates: start: 20110725, end: 20110725
  3. WINRHO SDF LIQUID [Suspect]
     Indication: IDIOPATHIC THROMBOCYTOPENIC PURPURA
     Dosage: SEE IMAGE
     Route: 042
     Dates: start: 20110725, end: 20110725
  4. WINRHO SDF LIQUID [Suspect]
  5. WINRHO SDF LIQUID [Suspect]

REACTIONS (3)
  - HAEMOLYSIS [None]
  - MOUTH HAEMORRHAGE [None]
  - ANAEMIA [None]
